FAERS Safety Report 6250622-0 (Version None)
Quarter: 2009Q2

REPORT INFORMATION
  Report Type: 
  Country: None (occurrence: None)
  Receive Date: 20090630
  Receipt Date: 20090619
  Transmission Date: 20091009
  Serious: No
  Sender: FDA-Public Use
  Company Number: US-AVENTIS-200914112US

PATIENT
  Age: 77 Year
  Sex: Male

DRUGS (2)
  1. APIDRA [Suspect]
     Dosage: DOSE: VARIES
     Route: 051
  2. OPTICLIK (INSULIN INJECTION PEN) [Suspect]

REACTIONS (2)
  - BLOOD GLUCOSE INCREASED [None]
  - INJECTION SITE HAEMATOMA [None]
